FAERS Safety Report 10003328 (Version 1)
Quarter: 2014Q1

REPORT INFORMATION
  Report Type: Spontaneous
  Country: ES (occurrence: ES)
  Receive Date: 20140312
  Receipt Date: 20140312
  Transmission Date: 20141002
  Serious: Yes (Other)
  Sender: FDA-Public Use
  Company Number: PHHY2014ES026521

PATIENT
  Age: 55 Year
  Sex: Female

DRUGS (4)
  1. PACLITAXEL [Suspect]
     Indication: METASTASES TO BREAST
     Dosage: 80 MG/M2, WEEKLY
  2. DOCETAXEL [Suspect]
     Indication: METASTASES TO BREAST
     Dosage: 100 MG/M2, UNK
  3. ADRIAMYCIN [Concomitant]
     Indication: BREAST CANCER
     Dosage: 60 MG/M2, UNK
  4. CYCLOPHOSPHAMIDE [Concomitant]
     Indication: BREAST CANCER
     Dosage: 600 MG/M2, UNK

REACTIONS (9)
  - Type IV hypersensitivity reaction [Unknown]
  - Skin toxicity [Recovered/Resolved]
  - Palmar-plantar erythrodysaesthesia syndrome [Recovered/Resolved]
  - Nail toxicity [Recovering/Resolving]
  - Arthralgia [Unknown]
  - Myalgia [Recovering/Resolving]
  - Asthenia [Recovering/Resolving]
  - Diarrhoea [Recovered/Resolved]
  - Neuropathy peripheral [Not Recovered/Not Resolved]
